FAERS Safety Report 13776506 (Version 1)
Quarter: 2017Q3

REPORT INFORMATION
  Report Type: Spontaneous
  Country: None (occurrence: US)
  Receive Date: 20170721
  Receipt Date: 20170721
  Transmission Date: 20171127
  Serious: Yes (Other)
  Sender: FDA-Public Use
  Company Number: US-STANDARD HOMEOPATHIC COMPANY-2023592

PATIENT
  Age: 86 Year
  Sex: Female

DRUGS (2)
  1. HYLANDS LEG CRAMPS [Suspect]
     Active Substance: HOMEOPATHICS
     Indication: BACK PAIN
     Route: 048
     Dates: start: 2010, end: 2017
  2. HYLANDS LEG CRAMPS [Suspect]
     Active Substance: HOMEOPATHICS
     Indication: MUSCLE SPASMS
     Route: 048
     Dates: start: 2010, end: 2017

REACTIONS (5)
  - Fluid retention [None]
  - Erythema [None]
  - Breast swelling [None]
  - Incision site haemorrhage [None]
  - Procedural site reaction [None]

NARRATIVE: CASE EVENT DATE: 20170530
